FAERS Safety Report 17776148 (Version 3)
Quarter: 2020Q2

REPORT INFORMATION
  Report Type: Spontaneous
  Country: US (occurrence: US)
  Receive Date: 20200513
  Receipt Date: 20200616
  Transmission Date: 20200714
  Serious: No
  Sender: FDA-Public Use
  Company Number: US-PFIZER INC-2020190865

PATIENT
  Age: 68 Year
  Sex: Female

DRUGS (14)
  1. METHOTREXATE SODIUM. [Suspect]
     Active Substance: METHOTREXATE SODIUM
     Indication: INFLAMMATION
     Dosage: UNK
  2. REMICADE [Suspect]
     Active Substance: INFLIXIMAB
     Indication: INFLAMMATION
     Dosage: UNK
  3. METHOTREXATE SODIUM. [Suspect]
     Active Substance: METHOTREXATE SODIUM
     Indication: BLOOD TEST ABNORMAL
  4. ARIA [ARIPIPRAZOLE] [Suspect]
     Active Substance: ARIPIPRAZOLE
     Indication: INFLAMMATION
     Dosage: UNK
  5. SIMPONI [Suspect]
     Active Substance: GOLIMUMAB
     Indication: BLOOD TEST ABNORMAL
  6. ORENCIA [Suspect]
     Active Substance: ABATACEPT
     Indication: INFLAMMATION
     Dosage: UNK
  7. LEFLUNOMIDE. [Suspect]
     Active Substance: LEFLUNOMIDE
     Indication: BLOOD TEST ABNORMAL
  8. ORENCIA [Suspect]
     Active Substance: ABATACEPT
     Indication: BLOOD TEST ABNORMAL
  9. RINVOQ [Suspect]
     Active Substance: UPADACITINIB
     Indication: BLOOD TEST ABNORMAL
  10. RINVOQ [Suspect]
     Active Substance: UPADACITINIB
     Indication: INFLAMMATION
     Dosage: UNK
  11. LEFLUNOMIDE. [Suspect]
     Active Substance: LEFLUNOMIDE
     Indication: INFLAMMATION
     Dosage: UNK
  12. SIMPONI [Suspect]
     Active Substance: GOLIMUMAB
     Indication: INFLAMMATION
     Dosage: UNK
  13. REMICADE [Suspect]
     Active Substance: INFLIXIMAB
     Indication: BLOOD TEST ABNORMAL
  14. ARIA [ARIPIPRAZOLE] [Suspect]
     Active Substance: ARIPIPRAZOLE
     Indication: BLOOD TEST ABNORMAL

REACTIONS (1)
  - Drug ineffective [Unknown]
